FAERS Safety Report 8579548-4 (Version None)
Quarter: 2012Q3

REPORT INFORMATION
  Report Type: 
  Country: None (occurrence: None)
  Receive Date: 20120731
  Receipt Date: 20120731
  Transmission Date: 20120928
  Serious: Yes (Hospitalization)
  Sender: FDA-Public Use
  Company Number: None

PATIENT
  Sex: Male
  Weight: 112 kg

DRUGS (1)
  1. INTRON A [Suspect]
     Dosage: 23 MU
     Dates: end: 20120717

REACTIONS (10)
  - NAUSEA [None]
  - DEHYDRATION [None]
  - FATIGUE [None]
  - DIZZINESS [None]
  - DIARRHOEA [None]
  - CHILLS [None]
  - FLUID INTAKE REDUCED [None]
  - ABDOMINAL PAIN [None]
  - DYSSTASIA [None]
  - WEIGHT DECREASED [None]
